FAERS Safety Report 12469448 (Version 17)
Quarter: 2019Q4

REPORT INFORMATION
  Report Type: Report from Study
  Country: US (occurrence: US)
  Receive Date: 20160615
  Receipt Date: 20191105
  Transmission Date: 20200122
  Serious: Yes (Hospitalization, Other)
  Sender: FDA-Public Use
  Company Number: US-ACTELION-A-NJ2016-137592

PATIENT
  Age: 72 Year
  Sex: Male
  Weight: 70.3 kg

DRUGS (10)
  1. UPTRAVI [Suspect]
     Active Substance: SELEXIPAG
     Dosage: 200 MCG, BID
     Route: 048
     Dates: start: 20160907
  2. UPTRAVI [Suspect]
     Active Substance: SELEXIPAG
     Dosage: 1000 MCG, BID
     Route: 048
  3. UPTRAVI [Suspect]
     Active Substance: SELEXIPAG
     Dosage: 800 MCG, UNK
     Route: 048
  4. OPSUMIT [Suspect]
     Active Substance: MACITENTAN
     Indication: PULMONARY ARTERIAL HYPERTENSION
     Dosage: 10 MG, QD
     Route: 048
     Dates: start: 20150520
  5. UPTRAVI [Suspect]
     Active Substance: SELEXIPAG
     Indication: PULMONARY ARTERIAL HYPERTENSION
     Dosage: 1600 MCG, BID
     Route: 048
  6. AMLODIPINE [Concomitant]
     Active Substance: AMLODIPINE BESYLATE
  7. OPSUMIT [Suspect]
     Active Substance: MACITENTAN
     Dosage: UNK
     Route: 048
  8. SILDENAFIL. [Concomitant]
     Active Substance: SILDENAFIL
  9. ELIQUIS [Concomitant]
     Active Substance: APIXABAN
  10. UPTRAVI [Suspect]
     Active Substance: SELEXIPAG
     Dosage: 1200 MCG, BID
     Route: 048
     Dates: start: 201708

REACTIONS (35)
  - Endoscopy [Unknown]
  - Feeling abnormal [Unknown]
  - Dyspnoea exertional [Unknown]
  - Feeling cold [Unknown]
  - Gastrointestinal haemorrhage [Unknown]
  - Pain in extremity [Unknown]
  - Arthralgia [Unknown]
  - Malaise [Unknown]
  - Condition aggravated [Unknown]
  - Loss of consciousness [Unknown]
  - Muscle spasms [Unknown]
  - Seizure [Unknown]
  - Respiratory arrest [Unknown]
  - Fall [Unknown]
  - Transfusion [Unknown]
  - Weight fluctuation [Unknown]
  - Product administration error [Unknown]
  - Haemorrhage [Not Recovered/Not Resolved]
  - Angioplasty [Unknown]
  - Cyanosis [Unknown]
  - Hereditary haemorrhagic telangiectasia [Unknown]
  - Dialysis [Unknown]
  - Anaemia [Not Recovered/Not Resolved]
  - Haemoglobin decreased [Not Recovered/Not Resolved]
  - Appendicitis perforated [Unknown]
  - Lung disorder [Unknown]
  - Myalgia [Unknown]
  - Somnolence [Unknown]
  - Chest discomfort [Unknown]
  - Heart rate increased [Unknown]
  - Renal disorder [Unknown]
  - Fluid retention [Unknown]
  - Full blood count decreased [Unknown]
  - Headache [Unknown]
  - Chest pain [Unknown]

NARRATIVE: CASE EVENT DATE: 20160526
